FAERS Safety Report 25934210 (Version 1)
Quarter: 2025Q4

REPORT INFORMATION
  Report Type: Spontaneous
  Country: US (occurrence: US)
  Receive Date: 20251017
  Receipt Date: 20251017
  Transmission Date: 20260118
  Serious: Yes (Death, Other)
  Sender: MERCK SHARP & DOHME LLC
  Company Number: US-009507513-2337069

PATIENT
  Sex: Male

DRUGS (1)
  1. WELIREG [Suspect]
     Active Substance: BELZUTIFAN
     Indication: Renal cell carcinoma
     Dosage: STERNGTH: 40 MG
     Route: 048

REACTIONS (3)
  - Death [Fatal]
  - Metastases to lung [Unknown]
  - Hypoxia [Unknown]

NARRATIVE: CASE EVENT DATE: 20240101
